FAERS Safety Report 24548156 (Version 1)
Quarter: 2024Q4

REPORT INFORMATION
  Report Type: Spontaneous
  Country: US (occurrence: US)
  Receive Date: 20241025
  Receipt Date: 20241025
  Transmission Date: 20250115
  Serious: No
  Sender: AMGEN
  Company Number: US-AMGEN-USASP2024207640

PATIENT
  Age: 45 Year
  Sex: Female
  Weight: 90 kg

DRUGS (8)
  1. RITUXIMAB [Suspect]
     Active Substance: RITUXIMAB
     Indication: Retroperitoneal fibrosis
     Dosage: 1 GRAM
     Route: 065
  2. ATORVASTATIN [Concomitant]
     Active Substance: ATORVASTATIN
  3. SPIRONOLACTONE [Concomitant]
     Active Substance: SPIRONOLACTONE
  4. TOPIRAMATE [Concomitant]
     Active Substance: TOPIRAMATE
  5. VITAMINS [Concomitant]
     Active Substance: VITAMINS
  6. MEPERIDINE [Concomitant]
     Active Substance: MEPERIDINE
  7. METHYLPREDNISOLONE [Concomitant]
     Active Substance: METHYLPREDNISOLONE
  8. NICKEL [Concomitant]
     Active Substance: NICKEL

REACTIONS (3)
  - Infusion related reaction [Unknown]
  - Rosai-Dorfman syndrome [Unknown]
  - Off label use [Unknown]
